FAERS Safety Report 15896712 (Version 1)
Quarter: 2019Q1

REPORT INFORMATION
  Report Type: Spontaneous
  Country: IT (occurrence: IT)
  Receive Date: 20190131
  Receipt Date: 20190131
  Transmission Date: 20190417
  Serious: Yes (Other)
  Sender: FDA-Public Use
  Company Number: PHHY2019IT021861

PATIENT
  Age: 68 Year
  Sex: Female

DRUGS (6)
  1. GRANISETRON HYDROCHLORIDE. [Concomitant]
     Active Substance: GRANISETRON HYDROCHLORIDE
     Indication: PRODUCT USED FOR UNKNOWN INDICATION
     Dosage: 3 MG, CYCLIC
     Route: 042
     Dates: start: 20190121
  2. CHLORPHENAMIMINE MALEATE [Concomitant]
     Indication: PRODUCT USED FOR UNKNOWN INDICATION
     Dosage: 10 MG, CYCLIC
     Route: 042
     Dates: start: 20190121
  3. PACLITAXEL. [Suspect]
     Active Substance: PACLITAXEL
     Indication: BREAST NEOPLASM
     Dosage: 150 MG, QW
     Route: 042
     Dates: start: 20190121
  4. HERCEPTIN [Concomitant]
     Active Substance: TRASTUZUMAB
     Indication: BREAST NEOPLASM
     Dosage: 600 MG, CYCLIC
     Route: 058
     Dates: start: 20190121
  5. RANITIDINE HYDROCHLORIDE. [Concomitant]
     Active Substance: RANITIDINE HYDROCHLORIDE
     Indication: PRODUCT USED FOR UNKNOWN INDICATION
     Dosage: 50 MG, CYCLIC
     Route: 042
     Dates: start: 20190121
  6. DEXAMETHASONE. [Concomitant]
     Active Substance: DEXAMETHASONE
     Indication: PRODUCT USED FOR UNKNOWN INDICATION
     Dosage: 20 MG, CYCLIC
     Route: 042
     Dates: start: 20190121

REACTIONS (3)
  - Chest pain [Recovering/Resolving]
  - Malaise [Recovering/Resolving]
  - Pain in extremity [Recovering/Resolving]

NARRATIVE: CASE EVENT DATE: 20190121
